FAERS Safety Report 5677577-1 (Version None)
Quarter: 2008Q1

REPORT INFORMATION
  Report Type: 
  Country: None (occurrence: None)
  Receive Date: 20080324
  Receipt Date: 20080318
  Transmission Date: 20080703
  Serious: No
  Sender: FDA-Public Use
  Company Number: US-BAXTER-2008BH002181

PATIENT
  Age: 57 Year
  Sex: Female
  Weight: 52 kg

DRUGS (4)
  1. HEPARIN SODIUM [Suspect]
     Indication: FIBROMYALGIA
     Route: 058
     Dates: start: 20080201, end: 20080307
  2. PROPRANOLOL [Concomitant]
     Indication: MIGRAINE
     Dosage: DOSE UNIT:UNKNOWN
     Route: 065
  3. PERCOCET [Concomitant]
     Indication: DRUG USE FOR UNKNOWN INDICATION
     Dosage: DOSE UNIT:UNKNOWN
     Route: 065
  4. IMITREX ^CERENEX^ [Concomitant]
     Indication: MIGRAINE
     Route: 065

REACTIONS (8)
  - CHILLS [None]
  - DYSPNOEA [None]
  - HEADACHE [None]
  - HEART RATE INCREASED [None]
  - HYPERHIDROSIS [None]
  - INFLUENZA LIKE ILLNESS [None]
  - INJECTION SITE BRUISING [None]
  - INJECTION SITE PRURITUS [None]
